FAERS Safety Report 6860227-6 (Version None)
Quarter: 2010Q3

REPORT INFORMATION
  Report Type: 
  Country: None (occurrence: None)
  Receive Date: 20100720
  Receipt Date: 20100706
  Transmission Date: 20110219
  Serious: Yes (Other)
  Sender: FDA-Public Use
  Company Number: PHHY2010GB10315

PATIENT
  Sex: Female

DRUGS (4)
  1. CLOZARIL [Suspect]
     Indication: SCHIZOPHRENIA
     Dosage: UNK
     Route: 048
     Dates: start: 20081021, end: 20100307
  2. FLUOXETINE HCL [Concomitant]
     Indication: DEPRESSION
     Dosage: 60 MG DAILY
     Route: 048
     Dates: start: 20090601
  3. HYOSCINE HBR HYT [Concomitant]
     Dosage: 600MG DAILY
     Route: 048
     Dates: end: 20100307
  4. QUETIAPINE [Concomitant]
     Dosage: 350 MG DAILY
     Route: 048
     Dates: start: 20100120

REACTIONS (6)
  - ASTHMA [None]
  - FATIGUE [None]
  - MALAISE [None]
  - PETECHIAE [None]
  - PURPURA [None]
  - THROMBOCYTOPENIA [None]
